FAERS Safety Report 8021622-5 (Version None)
Quarter: 2012Q1

REPORT INFORMATION
  Report Type: 
  Country: None (occurrence: None)
  Receive Date: 20120104
  Receipt Date: 20120104
  Transmission Date: 20120608
  Serious: Yes (Other)
  Sender: FDA-Public Use
  Company Number: None

PATIENT
  Sex: Female

DRUGS (1)
  1. SUBOXONE [Suspect]
     Indication: DRUG DEPENDENCE
     Dosage: 2 AND ONE-HALF FILMS
     Route: 060

REACTIONS (6)
  - PARAESTHESIA ORAL [None]
  - HEADACHE [None]
  - DRUG DEPENDENCE [None]
  - URTICARIA [None]
  - DYSPHAGIA [None]
  - SWOLLEN TONGUE [None]
